FAERS Safety Report 15601666 (Version 1)
Quarter: 2018Q4

REPORT INFORMATION
  Report Type: Report from Study
  Country: GB (occurrence: GB)
  Receive Date: 20181109
  Receipt Date: 20181109
  Transmission Date: 20190205
  Serious: Yes (Death)
  Sender: FDA-Public Use
  Company Number: PHHY2018GB148986

PATIENT
  Age: 75 Year
  Sex: Male

DRUGS (1)
  1. ENTRESTO [Suspect]
     Active Substance: SACUBITRIL\VALSARTAN
     Indication: LEFT VENTRICULAR DYSFUNCTION
     Dosage: 1 DF(24 MG SACUBITRIL, 26 MG VALSARTAN), BID
     Route: 048
     Dates: start: 20181029, end: 20181031

REACTIONS (5)
  - Haematocrit decreased [Unknown]
  - Blood creatinine increased [Unknown]
  - Panic attack [Unknown]
  - Death [Fatal]
  - Dyspnoea [Unknown]

NARRATIVE: CASE EVENT DATE: 20181031
